FAERS Safety Report 11760343 (Version 1)
Quarter: 2015Q4

REPORT INFORMATION
  Report Type: Spontaneous
  Country: US (occurrence: US)
  Receive Date: 20151120
  Receipt Date: 20151120
  Transmission Date: 20160304
  Serious: No
  Sender: FDA-Public Use
  Company Number: US-ELI_LILLY_AND_COMPANY-US201211003537

PATIENT
  Age: 60 Year
  Sex: Male

DRUGS (1)
  1. FORTEO [Suspect]
     Active Substance: TERIPARATIDE
     Indication: OSTEOPENIA
     Dosage: 20 UG, QD
     Dates: start: 201210

REACTIONS (7)
  - Myalgia [Unknown]
  - Anxiety [Unknown]
  - Visual impairment [Unknown]
  - Chest pain [Unknown]
  - Pain in extremity [Unknown]
  - Gait disturbance [Unknown]
  - Off label use [Unknown]
